FAERS Safety Report 20033095 (Version 1)
Quarter: 2021Q4

REPORT INFORMATION
  Report Type: Spontaneous
  Country: US (occurrence: US)
  Receive Date: 20211104
  Receipt Date: 20211104
  Transmission Date: 20220303
  Serious: Yes (Other)
  Sender: FDA-Public Use
  Company Number: US-CURIUM-2021000739

PATIENT
  Age: 13 Year
  Sex: Female

DRUGS (2)
  1. SODIUM IODIDE I-131 [Suspect]
     Active Substance: SODIUM IODIDE I-131
     Route: 065
  2. SODIUM IODIDE I-131 [Suspect]
     Active Substance: SODIUM IODIDE I-131
     Dosage: TWO ADDITIONAL RAI TREATMENTS WITH A CUMULATIVE DOSE OF 285 MCI
     Route: 065

REACTIONS (3)
  - Dyspnoea [Recovering/Resolving]
  - Metastases to central nervous system [Unknown]
  - Treatment failure [Unknown]
